FAERS Safety Report 26193971 (Version 1)
Quarter: 2025Q4

REPORT INFORMATION
  Report Type: Report from Study
  Country: EU (occurrence: EU)
  Receive Date: 20251224
  Receipt Date: 20251224
  Transmission Date: 20260118
  Serious: Yes (Hospitalization)
  Sender: TEVA
  Company Number: None

PATIENT
  Age: 59 Year
  Sex: Male

DRUGS (3)
  1. IBUPROFEN [Suspect]
     Active Substance: IBUPROFEN
     Indication: Analgesic therapy
     Dosage: 40 TABLETS
     Route: 048
     Dates: start: 20250519, end: 20250626
  2. MOXIFLOXACIN [Suspect]
     Active Substance: MOXIFLOXACIN
     Indication: Wound dehiscence
     Route: 048
     Dates: start: 20250407, end: 20250613
  3. ALLOPURINOL [Suspect]
     Active Substance: ALLOPURINOL
     Indication: Plasmacytoma
     Dosage: 30 TABLETS
     Route: 048
     Dates: start: 20250213, end: 20250702

REACTIONS (1)
  - Acute generalised exanthematous pustulosis [Recovered/Resolved]

NARRATIVE: CASE EVENT DATE: 20250627
